FAERS Safety Report 8235724 (Version 2)
Quarter: 2016Q4

REPORT INFORMATION
  Report Type: Report from Study
  Country: US (occurrence: US)
  Receive Date: 20111108
  Receipt Date: 20161005
  Transmission Date: 20170207
  Serious: Yes (Hospitalization, Other)
  Sender: FDA-Public Use
  Company Number: US-ROCHE-1009175

PATIENT
  Age: 65 Year
  Sex: Female
  Weight: 77 kg

DRUGS (5)
  1. PACLITAXEL. [Suspect]
     Active Substance: PACLITAXEL
     Indication: ENDOMETRIAL CANCER
     Dosage: FREQUENCY:OVER 3 HOURS ON DAY 1 FOR 6 CYCLES?MOST RECENT DOSE ON 25/JUL/2011
     Route: 042
     Dates: start: 20110621
  2. CARBOPLATIN. [Suspect]
     Active Substance: CARBOPLATIN
     Indication: ENDOMETRIAL CANCER
     Dosage: AUC=6 OVER 30 MINUTES ON DAY 1 FOR 6 CYCLES?MOST RECENT DOSE ON 25/JUL/2011
     Route: 042
     Dates: start: 20110621
  3. PACLITAXEL. [Suspect]
     Active Substance: PACLITAXEL
     Route: 042
     Dates: start: 20110809, end: 20111008
  4. BEVACIZUMAB [Suspect]
     Active Substance: BEVACIZUMAB
     Indication: ENDOMETRIAL CANCER
     Dosage: CYCLE 2 (15 MG/KG)?MOST RECENT DOSE ON 25/JUL/2011
     Route: 042
     Dates: start: 20110719
  5. CARBOPLATIN. [Suspect]
     Active Substance: CARBOPLATIN
     Route: 042
     Dates: start: 20110809, end: 20111028

REACTIONS (4)
  - Nausea [Unknown]
  - Vomiting [Unknown]
  - Dysphagia [Recovered/Resolved]
  - Dehydration [Unknown]

NARRATIVE: CASE EVENT DATE: 20110725
